FAERS Safety Report 7131027-7 (Version None)
Quarter: 2010Q4

REPORT INFORMATION
  Report Type: 
  Country: None (occurrence: None)
  Receive Date: 20101201
  Receipt Date: 20101120
  Transmission Date: 20110411
  Serious: Yes (Other)
  Sender: FDA-Public Use
  Company Number: B0686463A

PATIENT
  Age: 67 Year
  Sex: Male
  Weight: 84.4 kg

DRUGS (3)
  1. MARAVIROC [Suspect]
     Indication: HIV INFECTION
     Dosage: 150MG TWICE PER DAY
     Route: 048
     Dates: start: 20060330
  2. TRUVADA [Concomitant]
  3. KALETRA [Concomitant]

REACTIONS (1)
  - ANAL CANCER [None]
